FAERS Safety Report 17751512 (Version 1)
Quarter: 2020Q2

REPORT INFORMATION
  Report Type: Report from Study
  Country: US (occurrence: US)
  Receive Date: 20200506
  Receipt Date: 20200506
  Transmission Date: 20200714
  Serious: Yes (Other)
  Sender: FDA-Public Use
  Company Number: US-AMGEN-USASL2020061561

PATIENT
  Age: 54 Year
  Sex: Female
  Weight: 72.56 kg

DRUGS (1)
  1. ENBREL [Suspect]
     Active Substance: ETANERCEPT
     Indication: ANKYLOSING SPONDYLITIS
     Dosage: 50 MILLIGRAM, QWK
     Route: 065

REACTIONS (7)
  - Pain in extremity [Recovered/Resolved]
  - Bronchitis [Recovered/Resolved]
  - Sputum abnormal [Recovered/Resolved]
  - Respiratory symptom [Recovered/Resolved]
  - Chest pain [Recovered/Resolved]
  - Pyrexia [Recovered/Resolved]
  - Headache [Recovered/Resolved]

NARRATIVE: CASE EVENT DATE: 202002
